FAERS Safety Report 20784660 (Version 2)
Quarter: 2022Q2

REPORT INFORMATION
  Report Type: Spontaneous
  Country: HR (occurrence: HR)
  Receive Date: 20220504
  Receipt Date: 20220527
  Transmission Date: 20220721
  Serious: Yes (Other)
  Sender: FDA-Public Use
  Company Number: HR-PFIZER INC-202200615148

PATIENT
  Age: 73 Year
  Sex: Male

DRUGS (8)
  1. APIXABAN [Suspect]
     Active Substance: APIXABAN
     Dosage: 5 MG, 2X/DAY
     Route: 065
  2. PANTOPRAZOLE [Suspect]
     Active Substance: PANTOPRAZOLE
     Dosage: 40 MG ON AN EMPTY STOMACH
     Route: 065
  3. EPLERENONE [Suspect]
     Active Substance: EPLERENONE
     Dosage: 25 MG
  4. METOCLOPRAMIDE [Suspect]
     Active Substance: METOCLOPRAMIDE
     Dosage: AS NEEDED
  5. FUROSEMIDE [Suspect]
     Active Substance: FUROSEMIDE
     Dosage: 4 ML/H
  6. METILDIGOXIN [Suspect]
     Active Substance: METILDIGOXIN
     Dosage: UNK
  7. BISOPROLOL [Suspect]
     Active Substance: BISOPROLOL
     Dosage: 5 MILLIGRAM + 2.5 MG
  8. RAMIPRIL [Suspect]
     Active Substance: RAMIPRIL
     Dosage: 5 MG
     Route: 065

REACTIONS (1)
  - Cardiac hypertrophy [Unknown]
